FAERS Safety Report 8308225-X (Version None)
Quarter: 2012Q2

REPORT INFORMATION
  Report Type: 
  Country: None (occurrence: None)
  Receive Date: 20120424
  Receipt Date: 20120419
  Transmission Date: 20120825
  Serious: Yes (Hospitalization, Other)
  Sender: FDA-Public Use
  Company Number: US-PFIZER INC-2012087053

PATIENT
  Age: 34 Year
  Sex: Male

DRUGS (1)
  1. ATROPINE SULFATE [Suspect]
     Dosage: 150 MG, UNK

REACTIONS (9)
  - INTENTIONAL OVERDOSE [None]
  - HYPERTHERMIA [None]
  - AGITATION [None]
  - MENTAL STATUS CHANGES [None]
  - CIRCULATORY COLLAPSE [None]
  - SUICIDE ATTEMPT [None]
  - MUCOSAL DRYNESS [None]
  - FLUSHING [None]
  - SINUS TACHYCARDIA [None]
